FAERS Safety Report 8339767-9 (Version None)
Quarter: 2012Q2

REPORT INFORMATION
  Report Type: 
  Country: None (occurrence: None)
  Receive Date: 20120507
  Receipt Date: 20120430
  Transmission Date: 20120825
  Serious: No
  Sender: FDA-Public Use
  Company Number: US-B.I. PHARMACEUTICALS,INC./RIDGEFIELD-2012-BP-09983BP

PATIENT
  Age: 60 Year
  Sex: Male

DRUGS (8)
  1. TRICOR [Concomitant]
     Indication: BLOOD CHOLESTEROL INCREASED
  2. FLOMAX [Suspect]
     Indication: PROSTATOMEGALY
     Route: 048
  3. LEXAPRO [Suspect]
     Indication: ANXIETY
     Dosage: 10 MG
     Route: 048
     Dates: start: 20040101, end: 20100101
  4. LEXAPRO [Suspect]
     Indication: DEPRESSION
  5. WELLBUTRIN [Concomitant]
     Indication: DEPRESSION
  6. CARDURA [Suspect]
     Indication: PROSTATOMEGALY
  7. ALPHAGAN [Concomitant]
     Indication: GLAUCOMA
  8. LIPITOR [Concomitant]
     Indication: BLOOD CHOLESTEROL INCREASED

REACTIONS (1)
  - SEXUAL DYSFUNCTION [None]
